FAERS Safety Report 9905858 (Version 2)
Quarter: 2014Q1

REPORT INFORMATION
  Report Type: Spontaneous
  Country: FR (occurrence: FR)
  Receive Date: 20140218
  Receipt Date: 20140225
  Transmission Date: 20141002
  Serious: Yes (Hospitalization, Other)
  Sender: FDA-Public Use
  Company Number: FR-ASTRAZENECA-2014SE10089

PATIENT
  Age: 30708 Day
  Sex: Female

DRUGS (11)
  1. CRESTOR [Suspect]
     Route: 048
     Dates: end: 20121113
  2. CRESTOR [Suspect]
     Route: 048
     Dates: start: 20121113, end: 20140105
  3. CARDENSIEL [Concomitant]
     Route: 048
  4. LASILIX FAIBLE [Concomitant]
     Route: 048
  5. AMIODARONE [Concomitant]
     Dosage: 200 MG 6 TIMES A WEEK
     Route: 048
  6. PREVISCAN [Concomitant]
     Route: 048
  7. DOLIPRANE [Concomitant]
     Route: 048
  8. PANTOPRAZOLE [Concomitant]
     Route: 048
  9. EDUCTYL [Concomitant]
     Route: 054
  10. UVEDOSE [Concomitant]
     Route: 048
  11. MACROGOL [Concomitant]
     Dosage: 4000, 2 DF QD
     Route: 048

REACTIONS (13)
  - Renal failure acute [Recovered/Resolved]
  - Hepatocellular injury [Recovered/Resolved]
  - Cardiac failure [Unknown]
  - General physical health deterioration [Unknown]
  - Decreased appetite [Unknown]
  - Chronic lymphocytic leukaemia [Unknown]
  - Respiratory distress [Unknown]
  - Acute pulmonary oedema [Unknown]
  - Gout [Recovering/Resolving]
  - Rhabdomyolysis [Recovered/Resolved]
  - Asthenia [Unknown]
  - Back pain [Unknown]
  - Therapy cessation [Unknown]
